FAERS Safety Report 15315076 (Version 2)
Quarter: 2018Q4

REPORT INFORMATION
  Report Type: Spontaneous
  Country: US (occurrence: US)
  Receive Date: 20180824
  Receipt Date: 20180906
  Transmission Date: 20190204
  Serious: No
  Sender: FDA-Public Use
  Company Number: US-GLAXOSMITHKLINE-US2018148937

PATIENT
  Sex: Male

DRUGS (1)
  1. NICORETTE SPEARMINT BURST [Suspect]
     Active Substance: NICOTINE
     Indication: PRODUCT USED FOR UNKNOWN INDICATION
     Dosage: 2 MG, UNK

REACTIONS (3)
  - Product taste abnormal [Unknown]
  - Dysgeusia [Unknown]
  - Product complaint [Unknown]
